FAERS Safety Report 4940933-0 (Version None)
Quarter: 2006Q1

REPORT INFORMATION
  Report Type: 
  Country: None (occurrence: None)
  Receive Date: 20060313
  Receipt Date: 20060302
  Transmission Date: 20060701
  Serious: Yes (Disabling)
  Sender: FDA-Public Use
  Company Number: JP-JNJFOC-20060300524

PATIENT
  Sex: Male

DRUGS (6)
  1. LEVOFLOXACIN [Suspect]
     Indication: DRUG USE FOR UNKNOWN INDICATION
     Route: 048
     Dates: start: 20060116, end: 20060205
  2. LINEZOLID [Suspect]
     Indication: DRUG USE FOR UNKNOWN INDICATION
     Route: 048
     Dates: start: 20060118, end: 20060207
  3. NADROPARIN CALCIUM [Concomitant]
  4. OMEPRAZOLE [Concomitant]
  5. PAROXETINE HYDROCHLORIDE [Concomitant]
  6. RIFAMPICIN [Concomitant]

REACTIONS (1)
  - DEAFNESS BILATERAL [None]
